FAERS Safety Report 12130083 (Version 1)
Quarter: 2016Q1

REPORT INFORMATION
  Report Type: Other
  Country: US (occurrence: US)
  Receive Date: 20160229
  Receipt Date: 20160229
  Transmission Date: 20160526
  Serious: No
  Sender: FDA-Public Use
  Company Number: US-ACORDA-ACO_23636_2010

PATIENT
  Age: 46 Year
  Sex: Female
  Weight: 67 kg

DRUGS (6)
  1. VITAMIN D [Concomitant]
     Active Substance: CHOLECALCIFEROL
     Dosage: UNK UNK, BID
  2. BACLOFEN. [Concomitant]
     Active Substance: BACLOFEN
  3. REQUIP [Concomitant]
     Active Substance: ROPINIROLE HYDROCHLORIDE
     Dosage: DF
  4. MULTIVITAMIN [Concomitant]
     Active Substance: VITAMINS
     Dosage: DF
  5. AMPYRA [Suspect]
     Active Substance: DALFAMPRIDINE
     Indication: GAIT DISTURBANCE
     Dosage: 10 MG, BID
     Route: 048
     Dates: start: 20100525, end: 20100619
  6. OXYBUTYNIN [Concomitant]
     Active Substance: OXYBUTYNIN
     Dosage: DF

REACTIONS (5)
  - Chest discomfort [Recovered/Resolved]
  - Dysstasia [Recovered/Resolved]
  - Peripheral swelling [Recovering/Resolving]
  - Tremor [Recovered/Resolved]
  - Insomnia [Recovered/Resolved]

NARRATIVE: CASE EVENT DATE: 20100528
